FAERS Safety Report 15145495 (Version 3)
Quarter: 2019Q1

REPORT INFORMATION
  Report Type: Spontaneous
  Country: EG (occurrence: EG)
  Receive Date: 20180713
  Receipt Date: 20190128
  Transmission Date: 20190417
  Serious: Yes (Hospitalization)
  Sender: FDA-Public Use
  Company Number: EG-ALLERGAN-1834718US

PATIENT
  Age: 6 Year
  Sex: Male

DRUGS (2)
  1. NEUROXIN (BOTULINUM TOXIN TYPE A) [Suspect]
     Active Substance: BOTULINUM TOXIN TYPE A
     Indication: MUSCLE SPASTICITY
     Dosage: 260 UNITS, SINGLE
     Route: 030
  2. BOTOX [Suspect]
     Active Substance: ONABOTULINUMTOXINA
     Indication: MUSCLE SPASTICITY
     Dosage: 260 UNITS, SINGLE
     Route: 030
     Dates: start: 2017, end: 2017

REACTIONS (8)
  - Wrong technique in product usage process [Unknown]
  - Eyelid ptosis [Recovered/Resolved]
  - Muscular weakness [Recovered/Resolved]
  - Dysarthria [Recovered/Resolved]
  - Counterfeit product administered [Unknown]
  - Asthenia [Recovered/Resolved]
  - Botulism [Recovered/Resolved]
  - Dysphagia [Recovered/Resolved]

NARRATIVE: CASE EVENT DATE: 2017
